FAERS Safety Report 21874441 (Version 1)
Quarter: 2023Q1

REPORT INFORMATION
  Report Type: Report from Study
  Country: US (occurrence: US)
  Receive Date: 20230117
  Receipt Date: 20230117
  Transmission Date: 20230417
  Serious: Yes (Death)
  Sender: FDA-Public Use
  Company Number: US-OTSUKA-2023_001155

PATIENT
  Age: 84 Year
  Sex: Female

DRUGS (1)
  1. DEXTROMETHORPHAN HYDROBROMIDE\QUINIDINE SULFATE [Suspect]
     Active Substance: DEXTROMETHORPHAN HYDROBROMIDE\QUINIDINE SULFATE
     Indication: Product used for unknown indication
     Dosage: (20MG /MG CAPSULE 30 FOR 30 DAY SUPPLY)
     Route: 065
     Dates: end: 20221129

REACTIONS (1)
  - Death [Fatal]

NARRATIVE: CASE EVENT DATE: 20221229
